FAERS Safety Report 19552727 (Version 1)
Quarter: 2021Q3

REPORT INFORMATION
  Report Type: Spontaneous
  Country: DE (occurrence: DE)
  Receive Date: 20210715
  Receipt Date: 20210715
  Transmission Date: 20211014
  Serious: Yes (Hospitalization)
  Sender: FDA-Public Use
  Company Number: DE-TEVA-2021-DE-1932083

PATIENT
  Age: 64 Year
  Sex: Male

DRUGS (6)
  1. CLOPIDOGREL [Concomitant]
     Active Substance: CLOPIDOGREL BISULFATE
     Dosage: 75 MILLIGRAM DAILY; 1?0?0?0
     Route: 048
  2. ATORVASTATIN [Suspect]
     Active Substance: ATORVASTATIN
     Dosage: 40 MILLIGRAM DAILY; 0?0?1?0
     Route: 048
  3. METOPROLOL. [Concomitant]
     Active Substance: METOPROLOL
     Dosage: 47.5 MILLIGRAM DAILY; 23.75 MG, 1?0?1?0
     Route: 048
  4. ACETYLSALICYLSAEURE [Concomitant]
     Active Substance: ASPIRIN
     Dosage: 100 MILLIGRAM DAILY; 1?0?0?0
     Route: 048
  5. GLATIRAMER ACETATE. [Suspect]
     Active Substance: GLATIRAMER ACETATE
     Dosage: 40 MG
     Route: 030
  6. CANDESARTAN. [Concomitant]
     Active Substance: CANDESARTAN
     Dosage: 2 DOSAGE FORMS DAILY; 16 MG, 2?0?0?0
     Route: 048

REACTIONS (1)
  - Chest discomfort [Unknown]

NARRATIVE: CASE EVENT DATE: 20210322
